FAERS Safety Report 22691226 (Version 9)
Quarter: 2023Q4

REPORT INFORMATION
  Report Type: Other
  Country: AR (occurrence: None)
  Receive Date: 20230711
  Receipt Date: 20231127
  Transmission Date: 20240109
  Serious: Yes (Life-Threatening, Hospitalization)
  Sender: FDA-Public Use
  Company Number: AR-ROCHE-3382921

PATIENT
  Age: 45 Year
  Sex: Male
  Weight: 65 kg

DRUGS (10)
  1. POLIVY [Suspect]
     Active Substance: POLATUZUMAB VEDOTIN-PIIQ
     Indication: Diffuse large B-cell lymphoma refractory
     Dosage: DATE OF LAST DOSE OF POLATUZUMAB BEFORE THE START OF THE EVENT ON 16/JUNE/2023 AT 1.8 MG/KG
     Route: 042
     Dates: start: 20230518, end: 20230918
  2. POLIVY [Suspect]
     Active Substance: POLATUZUMAB VEDOTIN-PIIQ
     Dosage: DATE OF LAST DOSE OF POLATUZUMAB BEFORE THE START OF THE EVENT: 18/AUG/2023 (LOT NUMBER: UNKNOWN), D
     Route: 042
     Dates: start: 20230613
  3. POLIVY [Suspect]
     Active Substance: POLATUZUMAB VEDOTIN-PIIQ
     Dosage: LAST DOSE OF POLATUZUMAB BEFORE THE START OF THE EVENT
     Route: 042
     Dates: start: 20230818
  4. RITUXIMAB [Suspect]
     Active Substance: RITUXIMAB
     Indication: Diffuse large B-cell lymphoma refractory
     Dosage: 375 (UNIT NOT REPORTED)
     Route: 041
     Dates: start: 20230518
  5. RITUXIMAB [Suspect]
     Active Substance: RITUXIMAB
     Dosage: 375 (UNIT NOT REPORTED)
     Route: 041
     Dates: start: 20230613
  6. BENDAMUSTINE [Suspect]
     Active Substance: BENDAMUSTINE
     Indication: Diffuse large B-cell lymphoma refractory
     Dosage: DOSE: 90 (UNIT NOT REPORTED)
     Route: 042
     Dates: start: 20230518, end: 20230518
  7. BENDAMUSTINE [Suspect]
     Active Substance: BENDAMUSTINE
     Dosage: DOSE: 90 (UNIT NOT REPORTED)
     Route: 042
     Dates: start: 20230613
  8. ENALAPRIL [Concomitant]
     Active Substance: ENALAPRIL
     Indication: Hypertension
  9. BISOPROLOL [Concomitant]
     Active Substance: BISOPROLOL\BISOPROLOL FUMARATE
  10. GRANULOCYTE COLONY-STIMULATING FACTOR NOS [Concomitant]
     Active Substance: GRANULOCYTE COLONY-STIMULATING FACTOR NOS

REACTIONS (6)
  - Neutropenia [Recovered/Resolved]
  - Acute kidney injury [Recovered/Resolved]
  - Renal failure [Recovered/Resolved]
  - COVID-19 [Recovered/Resolved]
  - Soft tissue infection [Recovered/Resolved]
  - Anaemia [Recovered/Resolved]

NARRATIVE: CASE EVENT DATE: 20230626
